FAERS Safety Report 6243727-1 (Version None)
Quarter: 2009Q2

REPORT INFORMATION
  Report Type: 
  Country: None (occurrence: None)
  Receive Date: 20090624
  Receipt Date: 20090615
  Transmission Date: 20091009
  Serious: Yes (Hospitalization, Other)
  Sender: FDA-Public Use
  Company Number: ZA-ABBOTT-09P-143-0572179-00

PATIENT
  Sex: Male

DRUGS (7)
  1. HUMIRA [Suspect]
     Indication: ANKYLOSING SPONDYLITIS
     Route: 058
     Dates: start: 20080601, end: 20090409
  2. WARFARIN [Concomitant]
     Indication: DEEP VEIN THROMBOSIS
     Route: 048
     Dates: start: 20070101
  3. TREPILENE [Concomitant]
     Indication: DRUG USE FOR UNKNOWN INDICATION
     Dosage: AT NIGHT
     Route: 048
  4. BEZAFIBRATE [Concomitant]
     Indication: DYSLIPIDAEMIA
     Route: 048
  5. PREDNISONE [Concomitant]
     Indication: ANKYLOSING SPONDYLITIS
     Route: 048
  6. DOXYFENE [Concomitant]
     Indication: BACK PAIN
     Dosage: 65MG/250MG- 2-3 TIMES DAILY AS REQUIRED
     Route: 048
     Dates: start: 20080101, end: 20090101
  7. DICLOFENAC [Concomitant]
     Indication: BACK PAIN
     Route: 048
     Dates: start: 20080101, end: 20090101

REACTIONS (4)
  - DIZZINESS [None]
  - HAEMATEMESIS [None]
  - LOSS OF CONSCIOUSNESS [None]
  - THROMBOSIS [None]
